FAERS Safety Report 25473723 (Version 1)
Quarter: 2025Q2

REPORT INFORMATION
  Report Type: Spontaneous
  Country: US (occurrence: None)
  Receive Date: 20250624
  Receipt Date: 20250624
  Transmission Date: 20250717
  Serious: Yes (Hospitalization)
  Sender: FDA-CTU
  Company Number: None

PATIENT
  Sex: Male

DRUGS (7)
  1. PULMOZYME [Suspect]
     Active Substance: DORNASE ALFA
     Indication: Cystic fibrosis
     Dosage: OTHER QUANTITY : TAKE 1 AMPULE VIA NEBULIZER ;?FREQUENCY : DAILY;?
     Route: 055
     Dates: start: 20240601
  2. CHOLESTYRAMI POW [Concomitant]
  3. CREON [Concomitant]
     Active Substance: PANCRELIPASE AMYLASE\PANCRELIPASE LIPASE\PANCRELIPASE PROTEASE
  4. ENSURE CLEAR LIQ BBRY/POM [Concomitant]
  5. SODIUM CHLORIDE [Concomitant]
     Active Substance: SODIUM CHLORIDE
  6. TOBI  NEB [Concomitant]
  7. TRIKAFTA [Concomitant]
     Active Substance: ELEXACAFTOR\IVACAFTOR\TEZACAFTOR

REACTIONS (3)
  - Pneumonia [None]
  - Gun shot wound [None]
  - Head injury [None]
